FAERS Safety Report 9022139 (Version 1)
Quarter: 2013Q1

REPORT INFORMATION
  Report Type: Spontaneous
  Country: US (occurrence: US)
  Receive Date: 20130118
  Receipt Date: 20130118
  Transmission Date: 20140127
  Serious: Yes (Hospitalization)
  Sender: FDA-Public Use
  Company Number: US-BAYER-2013-004941

PATIENT
  Age: 77 Year
  Sex: Female

DRUGS (6)
  1. ACETYLSALICYLIC ACID({=100 MG) [Suspect]
     Dosage: 81 MG DAILY
  2. METOPROLOL [Concomitant]
     Dosage: 25 MG, BID
  3. ENALAPRIL [Concomitant]
     Dosage: 2.5 MG DAILY
  4. METHIMAZOLE [Concomitant]
     Dosage: 30 MG DAILY
  5. SIMVASTATIN [Concomitant]
     Dosage: 40 MG DAILY
  6. IPRATROPIUM [Concomitant]
     Dosage: 2 DF, BID
     Route: 055

REACTIONS (3)
  - Thrombosis in device [None]
  - Acute myocardial infarction [None]
  - Drug ineffective [None]
